FAERS Safety Report 5351876-5 (Version None)
Quarter: 2007Q2

REPORT INFORMATION
  Report Type: 
  Country: None (occurrence: None)
  Receive Date: 20070609
  Receipt Date: 20070529
  Transmission Date: 20071010
  Serious: Yes (Hospitalization, Other)
  Sender: FDA-Public Use
  Company Number: JP-ABBOTT-07P-087-0369696-00

PATIENT
  Age: 32 Year
  Sex: Female

DRUGS (1)
  1. SEVOFLURANE [Suspect]
     Indication: ASTHMA
     Route: 055

REACTIONS (1)
  - DELAYED RECOVERY FROM ANAESTHESIA [None]
